FAERS Safety Report 21059031 (Version 1)
Quarter: 2022Q3

REPORT INFORMATION
  Report Type: Spontaneous
  Country: US (occurrence: None)
  Receive Date: 20220708
  Receipt Date: 20220708
  Transmission Date: 20221027
  Serious: Yes (unspecified)
  Sender: FDA-Public Use
  Company Number: None

PATIENT
  Age: 54 Year
  Sex: Female

DRUGS (1)
  1. ASPERCREME HEAT [Suspect]
     Active Substance: MENTHOL
     Indication: Myalgia
     Dosage: OTHER QUANTITY : 1 TABLESPOON(S);?
     Route: 061
     Dates: start: 20220707, end: 20220707

REACTIONS (2)
  - Skin burning sensation [None]
  - Blister [None]

NARRATIVE: CASE EVENT DATE: 20220707
